FAERS Safety Report 25700364 (Version 1)
Quarter: 2025Q3

REPORT INFORMATION
  Report Type: Spontaneous
  Country: US (occurrence: None)
  Receive Date: 20250818
  Receipt Date: 20250818
  Transmission Date: 20251020
  Serious: Yes (Death)
  Sender: FDA-CTU
  Company Number: None

PATIENT
  Age: 75 Year
  Sex: Female

DRUGS (6)
  1. XALKORI [Suspect]
     Active Substance: CRIZOTINIB
     Indication: Non-small cell lung cancer
     Dosage: FREQUENCY : TWICE A DAY;?
     Route: 048
     Dates: start: 20250716
  2. VITAMIN D 1,000IU H/PTNCY CAPSULES [Concomitant]
  3. TYLENOL 500 MG EIS (ACETAMINOPHEN) T [Concomitant]
  4. SODIUM CHLORIDE 1GM TABLETS [Concomitant]
  5. IBUPROFEN 200MG TABLETS [Concomitant]
  6. BENADRYL 25MG ALLERGY ULTRATABS [Concomitant]

REACTIONS (1)
  - Hospice care [None]

NARRATIVE: CASE EVENT DATE: 20250801
